FAERS Safety Report 11518755 (Version 3)
Quarter: 2017Q2

REPORT INFORMATION
  Report Type: Spontaneous
  Country: FR (occurrence: FR)
  Receive Date: 20150917
  Receipt Date: 20170517
  Transmission Date: 20170829
  Serious: Yes (Hospitalization, Disabling, Congenital Anomaly, Other)
  Sender: FDA-Public Use
  Company Number: FR-ABBVIE-15P-056-1464728-00

PATIENT
  Sex: Male

DRUGS (1)
  1. DEPAKINE [Suspect]
     Active Substance: VALPROATE SODIUM
     Indication: MATERNAL EXPOSURE TIMING UNSPECIFIED
     Route: 064

REACTIONS (20)
  - Foetal anticonvulsant syndrome [Unknown]
  - Obesity [Unknown]
  - Personality disorder [Unknown]
  - Ill-defined disorder [Unknown]
  - Speech disorder developmental [Unknown]
  - Dysmorphism [Not Recovered/Not Resolved]
  - Psychomotor retardation [Not Recovered/Not Resolved]
  - Insomnia [Not Recovered/Not Resolved]
  - Intellectual disability [Unknown]
  - Psychomotor hyperactivity [Not Recovered/Not Resolved]
  - Aggression [Unknown]
  - Speech disorder [Unknown]
  - Loss of personal independence in daily activities [Unknown]
  - Foetal exposure during pregnancy [Unknown]
  - Head injury [Unknown]
  - Anxiety [Not Recovered/Not Resolved]
  - Abnormal behaviour [Not Recovered/Not Resolved]
  - Autism spectrum disorder [Not Recovered/Not Resolved]
  - Developmental delay [Unknown]
  - Psychotic disorder [Not Recovered/Not Resolved]

NARRATIVE: CASE EVENT DATE: 19920610
